FAERS Safety Report 9548205 (Version 2)
Quarter: 2013Q4

REPORT INFORMATION
  Report Type: Spontaneous
  Country: FR (occurrence: FR)
  Receive Date: 20130924
  Receipt Date: 20131028
  Transmission Date: 20140711
  Serious: Yes (Hospitalization, Other)
  Sender: FDA-Public Use
  Company Number: FR-PFIZER INC-2013267661

PATIENT
  Age: 61 Year
  Sex: Female

DRUGS (28)
  1. VFEND [Suspect]
     Dosage: UNK
     Route: 048
     Dates: start: 20130606, end: 20130607
  2. ZARZIO [Suspect]
     Dosage: 1 DF DAILY
     Route: 058
     Dates: start: 20130604, end: 20130609
  3. SMECTA [Suspect]
     Dosage: UNK
     Route: 048
     Dates: start: 20130603, end: 20130610
  4. PANTOPRAZOLE SUN 40 MG POUDRE POUR SOLUTION INJECTABLE [Suspect]
     Dosage: 40 MG, 1X/DAY
     Route: 042
     Dates: start: 20130601, end: 20130611
  5. METOCLOPRAMIDE [Suspect]
     Dosage: UNK
     Route: 042
     Dates: start: 20130601, end: 20130608
  6. DUROGESIC [Suspect]
     Dosage: UNK
     Route: 062
     Dates: end: 20130526
  7. DUROGESIC [Suspect]
     Dosage: 25 UG/H (4.2MG/10.5CM2)
     Route: 062
     Dates: start: 20130601, end: 20130610
  8. ATARAX [Suspect]
     Dosage: 50 MG/DAY
     Route: 048
     Dates: start: 20130531, end: 20130610
  9. GRANISETRON [Suspect]
     Dosage: 6 MG DAILY (6 MG, 3MG/ML- TOTAL DAILY DOSE - 6MG)
     Route: 042
     Dates: start: 20130530, end: 20130609
  10. GAVISCON [Suspect]
     Dosage: UNK
     Route: 048
     Dates: start: 20130529, end: 20130610
  11. DIOSMECTAL [Suspect]
     Dosage: UNK
     Route: 048
     Dates: start: 20130603, end: 20130610
  12. MELPHALAN [Concomitant]
  13. ZOMETA [Concomitant]
  14. LEVOTHYROX [Concomitant]
     Indication: HYPOTHYROIDISM
  15. PENTACARINAT [Concomitant]
  16. INEXIUM [Concomitant]
     Dosage: 40 MG
     Dates: end: 20130531
  17. ARANESP [Concomitant]
  18. LASILIX [Concomitant]
  19. ACICLOVIR [Concomitant]
     Dosage: UNK
     Dates: end: 20130526
  20. ACICLOVIR [Concomitant]
     Dosage: UNK
     Dates: start: 20130601
  21. FORTUM [Concomitant]
  22. CANCIDAS [Concomitant]
     Dosage: UNK
     Dates: start: 20130605, end: 20130606
  23. HYDROCORTISONE HEMISUCCINATE [Concomitant]
  24. HEPARIN [Concomitant]
  25. VALACICLOVIR [Concomitant]
     Dosage: UNK
     Dates: start: 20130526, end: 20130531
  26. BACTRIM FORTE [Concomitant]
     Indication: HYPERTHERMIA
     Dosage: 3 DF, WEEKLY
     Dates: start: 20130531
  27. AMIKACIN [Concomitant]
     Dosage: UNK
     Dates: start: 20130531
  28. PARACETAMOL [Concomitant]
     Dosage: UNK
     Route: 042
     Dates: start: 20130605

REACTIONS (4)
  - Myoclonus [Recovered/Resolved]
  - Depressed level of consciousness [Recovered/Resolved]
  - Toxic encephalopathy [Recovered/Resolved]
  - Hallucination, visual [Recovered/Resolved]
